FAERS Safety Report 21866691 (Version 5)
Quarter: 2023Q4

REPORT INFORMATION
  Report Type: Spontaneous
  Country: US (occurrence: US)
  Receive Date: 20230116
  Receipt Date: 20231009
  Transmission Date: 20240110
  Serious: Yes (Other)
  Sender: FDA-Public Use
  Company Number: US-SUNOVION-2023SUN000056

PATIENT
  Age: 6 Year
  Sex: Female

DRUGS (4)
  1. APTIOM [Suspect]
     Active Substance: ESLICARBAZEPINE ACETATE
     Indication: Epilepsy
     Dosage: 400 MG
     Route: 048
     Dates: start: 2021
  2. APTIOM [Suspect]
     Active Substance: ESLICARBAZEPINE ACETATE
     Dosage: 600 MG
     Route: 048
     Dates: start: 202301
  3. APTIOM [Suspect]
     Active Substance: ESLICARBAZEPINE ACETATE
     Dosage: 500 MG (400 MG AND HALF OF 200 MG)
     Route: 048
  4. APTIOM [Suspect]
     Active Substance: ESLICARBAZEPINE ACETATE
     Dosage: 700 MG (600 MG AND HALF OF 200 MG)
     Route: 048
     Dates: start: 20230927

REACTIONS (3)
  - Postictal paralysis [Recovered/Resolved]
  - Seizure [Recovered/Resolved]
  - Therapeutic product effect increased [Unknown]

NARRATIVE: CASE EVENT DATE: 20230104
